FAERS Safety Report 9403150 (Version 2)
Quarter: 2013Q3

REPORT INFORMATION
  Report Type: Spontaneous
  Country: FR (occurrence: FR)
  Receive Date: 20130716
  Receipt Date: 20130918
  Transmission Date: 20140515
  Serious: Yes (Other)
  Sender: FDA-Public Use
  Company Number: FR-GLAXOSMITHKLINE-B0906821A

PATIENT
  Age: 43 Year
  Sex: Male

DRUGS (4)
  1. DEROXAT [Suspect]
     Indication: ANXIETY DISORDER
     Dosage: 10MG PER DAY
     Route: 048
     Dates: start: 201307
  2. PANTOPRAZOLE [Concomitant]
     Indication: NASAL POLYPS
     Route: 048
     Dates: start: 201306
  3. NASACORT [Concomitant]
     Indication: NASAL POLYPS
     Route: 045
  4. ISOPTINE [Concomitant]
     Dosage: 40MG TWICE PER DAY
     Route: 048

REACTIONS (3)
  - Dizziness [Unknown]
  - Balance disorder [Unknown]
  - Haematochezia [Unknown]
